FAERS Safety Report 9720812 (Version 1)
Quarter: 2013Q4

REPORT INFORMATION
  Report Type: Report from Study
  Country: US (occurrence: US)
  Receive Date: 20131129
  Receipt Date: 20131129
  Transmission Date: 20140711
  Serious: Yes (Hospitalization)
  Sender: FDA-Public Use
  Company Number: US-JNJFOC-20131115090

PATIENT
  Age: 0 None
  Sex: Female

DRUGS (4)
  1. REMICADE [Suspect]
     Indication: COLITIS ULCERATIVE
     Dosage: PARENT^S DOSING
     Route: 064
     Dates: start: 2010
  2. PROBIOTIC [Concomitant]
     Dosage: DOSE: 50 BILLION ONCE DAILY
     Route: 064
  3. VITAMIN D [Concomitant]
     Route: 064
     Dates: start: 2010
  4. CALCIUM AND MAGNESIUM [Concomitant]
     Route: 064
     Dates: start: 2010

REACTIONS (2)
  - Premature baby [Not Recovered/Not Resolved]
  - Foetal exposure during pregnancy [Recovered/Resolved]
